FAERS Safety Report 9030158 (Version 1)
Quarter: 2013Q1

REPORT INFORMATION
  Report Type: Spontaneous
  Country: FR (occurrence: FR)
  Receive Date: 20130125
  Receipt Date: 20130125
  Transmission Date: 20140127
  Serious: Yes (Life-Threatening, Hospitalization)
  Sender: FDA-Public Use
  Company Number: FR-BRISTOL-MYERS SQUIBB COMPANY-17308610

PATIENT
  Age: 74 Year
  Sex: Female

DRUGS (8)
  1. COUMADIN TABS 2 MG [Suspect]
     Indication: ATRIAL FIBRILLATION
     Route: 048
     Dates: end: 20121104
  2. DIFFU-K [Concomitant]
  3. ATENOLOL [Concomitant]
  4. COTAREG [Concomitant]
     Dosage: 80/12.5 MG
  5. GLUCOPHAGE [Concomitant]
  6. PRAVASTATINE [Concomitant]
  7. INEXIUM [Concomitant]
  8. SERESTA [Concomitant]

REACTIONS (2)
  - Haemorrhagic stroke [Not Recovered/Not Resolved]
  - Blood pressure increased [Unknown]
